APPROVED DRUG PRODUCT: HYDRALAZINE HYDROCHLORIDE
Active Ingredient: HYDRALAZINE HYDROCHLORIDE
Strength: 50MG
Dosage Form/Route: TABLET;ORAL
Application: A088848 | Product #001
Applicant: CHARTWELL RX SCIENCES LLC
Approved: Feb 26, 1985 | RLD: No | RS: No | Type: DISCN